FAERS Safety Report 8074034-2 (Version None)
Quarter: 2011Q4

REPORT INFORMATION
  Report Type: 
  Country: None (occurrence: None)
  Receive Date: 20111221
  Receipt Date: 20110324
  Transmission Date: 20120403
  Serious: Yes (Disabling)
  Sender: FDA-Public Use
  Company Number: PHHY2011US20767

PATIENT
  Age: 62 Year
  Sex: Female
  Weight: 107 kg

DRUGS (1)
  1. EXJADE [Suspect]
     Dosage: 1000 MG, DAILY, ORAL
     Route: 048

REACTIONS (3)
  - NAUSEA [None]
  - MALAISE [None]
  - ABDOMINAL PAIN UPPER [None]
